FAERS Safety Report 14108451 (Version 1)
Quarter: 2017Q4

REPORT INFORMATION
  Report Type: Spontaneous
  Country: AU (occurrence: AU)
  Receive Date: 20171019
  Receipt Date: 20171019
  Transmission Date: 20180321
  Serious: Yes (Life-Threatening, Hospitalization, Other)
  Sender: FDA-Public Use
  Company Number: AU-IGSA-SR10005375

PATIENT
  Age: 73 Year
  Sex: Female

DRUGS (1)
  1. FLEBOGAMMA DIF [Suspect]
     Active Substance: HUMAN IMMUNOGLOBULIN G
     Indication: INCLUSION BODY MYOSITIS
     Dosage: 30 G, Q.2WK.
     Route: 042
     Dates: start: 20171003, end: 20171003

REACTIONS (4)
  - Cardiac arrest [Recovering/Resolving]
  - Respiratory arrest [Recovering/Resolving]
  - Myocardial infarction [Recovering/Resolving]
  - Dyspnoea [Recovering/Resolving]

NARRATIVE: CASE EVENT DATE: 20171003
